FAERS Safety Report 7489370-8 (Version None)
Quarter: 2011Q2

REPORT INFORMATION
  Report Type: 
  Country: None (occurrence: None)
  Receive Date: 20110518
  Receipt Date: 20110428
  Transmission Date: 20111010
  Serious: Yes (Death, Other)
  Sender: FDA-Public Use
  Company Number: US-BAYER-200941103NA

PATIENT
  Age: 68 Year
  Sex: Female
  Weight: 72 kg

DRUGS (6)
  1. DOPAMINE HCL [Concomitant]
     Dosage: DRIP
     Route: 042
     Dates: start: 20021011, end: 20021011
  2. HEPARIN [Concomitant]
     Dosage: 40,000 UNITS
     Route: 042
     Dates: start: 20021011, end: 20021011
  3. NITROGLYCERIN [Concomitant]
     Dosage: UNK
     Route: 042
     Dates: start: 20021011, end: 20021011
  4. TRASYLOL [Suspect]
     Indication: PRODUCT USED FOR UNKNOWN INDICATION
     Dosage: TEST DOSE (1ML) LOADING DOSE (200CC THEN 50CC/HR)
     Route: 042
     Dates: start: 20021011
  5. FENTANYL [Concomitant]
     Dosage: UNK
     Route: 042
     Dates: start: 20021011, end: 20021011
  6. PROTAMINE SULFATE [Concomitant]
     Dosage: UNK
     Route: 042
     Dates: start: 20021011, end: 20021011

REACTIONS (13)
  - RENAL IMPAIRMENT [None]
  - STRESS [None]
  - MULTI-ORGAN FAILURE [None]
  - RENAL INJURY [None]
  - UNEVALUABLE EVENT [None]
  - ANHEDONIA [None]
  - DEATH [None]
  - EMOTIONAL DISTRESS [None]
  - FEAR [None]
  - ANXIETY [None]
  - PAIN [None]
  - INJURY [None]
  - RENAL FAILURE [None]
